FAERS Safety Report 6754302-4 (Version None)
Quarter: 2010Q2

REPORT INFORMATION
  Report Type: 
  Country: None (occurrence: None)
  Receive Date: 20100603
  Receipt Date: 20100525
  Transmission Date: 20101027
  Serious: Yes (Hospitalization)
  Sender: FDA-Public Use
  Company Number: FR-RB-010281-10

PATIENT
  Sex: Male

DRUGS (1)
  1. SUBUTEX [Suspect]
     Dosage: DAILY DOSE KNOWN-UNIT DOSE AND FREQUENCY UNKNOWN
     Route: 060

REACTIONS (1)
  - HOSPITALISATION [None]
